FAERS Safety Report 7858713-5 (Version None)
Quarter: 2011Q4

REPORT INFORMATION
  Report Type: 
  Country: None (occurrence: None)
  Receive Date: 20111027
  Receipt Date: 20111017
  Transmission Date: 20120403
  Serious: Yes (Other)
  Sender: FDA-Public Use
  Company Number: US-US-EMD SERONO, INC.-7090693

PATIENT
  Sex: Female

DRUGS (1)
  1. REBIF [Suspect]
     Indication: MULTIPLE SCLEROSIS
     Route: 058
     Dates: start: 20110523

REACTIONS (8)
  - ELECTROCARDIOGRAM ABNORMAL [None]
  - MUSCULOSKELETAL STIFFNESS [None]
  - TEMPERATURE INTOLERANCE [None]
  - HAEMOGLOBIN DECREASED [None]
  - TREMOR [None]
  - INSOMNIA [None]
  - UTERINE LEIOMYOMA [None]
  - FATIGUE [None]
